FAERS Safety Report 11152876 (Version 2)
Quarter: 2015Q3

REPORT INFORMATION
  Report Type: Spontaneous
  Country: DE (occurrence: DE)
  Receive Date: 20150601
  Receipt Date: 20150714
  Transmission Date: 20151125
  Serious: Yes (Disabling, Congenital Anomaly, Other)
  Sender: FDA-Public Use
  Company Number: DE-BAYER-2015-254351

PATIENT
  Sex: Male
  Weight: 2.79 kg

DRUGS (1)
  1. SKINOREN [Suspect]
     Active Substance: AZELAIC ACID
     Indication: PRODUCT USED FOR UNKNOWN INDICATION
     Route: 064

REACTIONS (7)
  - Limb malformation [Not Recovered/Not Resolved]
  - Talipes [None]
  - Foetal exposure during pregnancy [None]
  - Joint contracture [Not Recovered/Not Resolved]
  - Dysplasia [Not Recovered/Not Resolved]
  - Skeletal dysplasia [Not Recovered/Not Resolved]
  - Mobility decreased [None]

NARRATIVE: CASE EVENT DATE: 2015
